FAERS Safety Report 8882415 (Version 1)
Quarter: 2012Q4

REPORT INFORMATION
  Report Type: 
  Country: US (occurrence: US)
  Receive Date: 20121103
  Receipt Date: 20121103
  Transmission Date: 20130627
  Serious: No
  Sender: FDA-Public Use
  Company Number: US-009507513-1209USA010014

PATIENT
  Age: 58 Year
  Sex: Female
  Weight: 90.7 kg

DRUGS (6)
  1. PEG-INTRON [Suspect]
     Dosage: 150 Microgram/0.5 ml, qw, redipen
     Route: 058
  2. RIBAVIRIN [Suspect]
     Dosage: 200 mg, UNK
  3. VICTRELIS [Suspect]
     Dosage: 200 mg, UNK
  4. ARMOUR THYROID TABLETS [Concomitant]
  5. CELEXA [Concomitant]
  6. TYLENOL PM [Concomitant]
     Dosage: EX ST

REACTIONS (5)
  - Dysphonia [Unknown]
  - Ear pruritus [Unknown]
  - Vision blurred [Unknown]
  - Oedema peripheral [Unknown]
  - Headache [Unknown]
